FAERS Safety Report 5942425-9 (Version None)
Quarter: 2008Q4

REPORT INFORMATION
  Report Type: 
  Country: None (occurrence: None)
  Receive Date: 20081105
  Receipt Date: 20081028
  Transmission Date: 20090506
  Serious: Yes (Hospitalization)
  Sender: FDA-Public Use
  Company Number: GB-ALLERGAN-0813734US

PATIENT
  Sex: Male

DRUGS (8)
  1. DYSPORT [Suspect]
     Indication: DRUG USE FOR UNKNOWN INDICATION
     Dosage: 550 UNITS, UNK
  2. AMLODIPINE [Concomitant]
     Dosage: 10 MG, UNK
  3. BACLOFEN [Concomitant]
     Dosage: 5 MG, BID
  4. CLOPIDOGREL [Concomitant]
     Dosage: 15 MG, UNK
  5. FLUOXETINE [Concomitant]
     Dosage: 20 MG, UNK
  6. FRUSEMIDE [Concomitant]
     Dosage: 40 MG, BID
  7. LANSOPRAZOLE [Concomitant]
     Dosage: 15 MG, UNK
  8. ALBUTEROL SULFATE [Concomitant]

REACTIONS (1)
  - CHRONIC OBSTRUCTIVE PULMONARY DISEASE [None]
